FAERS Safety Report 4544306-4 (Version None)
Quarter: 2005Q1

REPORT INFORMATION
  Report Type: 
  Country: None (occurrence: None)
  Receive Date: 20050104
  Receipt Date: 20041229
  Transmission Date: 20050727
  Serious: Yes (Hospitalization)
  Sender: FDA-Public Use
  Company Number: US-MERCK-0412USA03307

PATIENT
  Sex: Female
  Weight: 36 kg

DRUGS (1)
  1. FOSAMAX [Suspect]
     Route: 048
     Dates: start: 20020101

REACTIONS (6)
  - DECREASED APPETITE [None]
  - GASTROENTERITIS VIRAL [None]
  - HIP FRACTURE [None]
  - LACTOSE INTOLERANCE [None]
  - MALAISE [None]
  - WEIGHT DECREASED [None]
